FAERS Safety Report 8094275-8 (Version None)
Quarter: 2012Q1

REPORT INFORMATION
  Report Type: 
  Country: None (occurrence: None)
  Receive Date: 20120130
  Receipt Date: 20120123
  Transmission Date: 20120608
  Serious: Yes (Disabling)
  Sender: FDA-Public Use
  Company Number: CA-SHIRE-ALL1-2012-00401

PATIENT
  Age: 18 Year
  Sex: Male

DRUGS (1)
  1. VYVANSE [Suspect]
     Indication: PRODUCT USED FOR UNKNOWN INDICATION
     Dosage: 1 DF, 1X/DAY:QD
     Route: 048

REACTIONS (4)
  - TACHYCARDIA [None]
  - SUICIDAL IDEATION [None]
  - DEAFNESS [None]
  - PALPITATIONS [None]
